FAERS Safety Report 19923950 (Version 1)
Quarter: 2021Q4

REPORT INFORMATION
  Report Type: Spontaneous
  Country: US (occurrence: US)
  Receive Date: 20211006
  Receipt Date: 20211006
  Transmission Date: 20220303
  Serious: Yes (Life-Threatening, Hospitalization)
  Sender: FDA-Public Use
  Company Number: US-MYLANLABS-2021M1067398

PATIENT
  Age: 15 Year
  Sex: Female

DRUGS (2)
  1. BUPROPION [Interacting]
     Active Substance: BUPROPION
     Indication: Product used for unknown indication
     Dosage: EXTENDED RELEASE
     Route: 048
  2. SERTRALINE [Interacting]
     Active Substance: SERTRALINE HYDROCHLORIDE
     Indication: Product used for unknown indication
     Dosage: UNK
     Route: 048

REACTIONS (7)
  - Metabolic encephalopathy [Recovered/Resolved with Sequelae]
  - Generalised tonic-clonic seizure [Recovered/Resolved with Sequelae]
  - Drug interaction [Recovered/Resolved with Sequelae]
  - Intentional overdose [Recovered/Resolved with Sequelae]
  - Suicide attempt [Recovered/Resolved with Sequelae]
  - Prescription drug used without a prescription [Recovered/Resolved with Sequelae]
  - Coma [Recovered/Resolved with Sequelae]
